FAERS Safety Report 6723207-7 (Version None)
Quarter: 2010Q2

REPORT INFORMATION
  Report Type: 
  Country: None (occurrence: None)
  Receive Date: 20100513
  Receipt Date: 20100510
  Transmission Date: 20101027
  Serious: Yes (Death)
  Sender: FDA-Public Use
  Company Number: JP-JNJFOC-20100403163

PATIENT
  Sex: Male
  Weight: 64 kg

DRUGS (9)
  1. RISPERDAL CONSTA [Suspect]
     Indication: SCHIZOPHRENIA
     Route: 030
     Dates: start: 20100303
  2. RISPERDAL CONSTA [Suspect]
     Route: 030
     Dates: start: 20100303
  3. BARNETIL [Suspect]
     Indication: SCHIZOPHRENIA
     Route: 048
  4. HIRNAMIN (LEVOPROMAZINE MALEATE) [Suspect]
     Indication: INSOMNIA
     Route: 048
  5. DEPAKENE [Suspect]
     Indication: DRUG USE FOR UNKNOWN INDICATION
     Route: 048
  6. BENZALIN [Suspect]
     Indication: INSOMNIA
     Route: 048
  7. TREMIN [Suspect]
     Indication: PROPHYLAXIS
     Route: 048
  8. CALCIUM PANTOTHENATE [Concomitant]
     Indication: CONSTIPATION
     Route: 048
  9. KAMAG G [Concomitant]
     Indication: CONSTIPATION
     Route: 048

REACTIONS (2)
  - CARDIAC ARREST [None]
  - CARDIAC DISORDER [None]
